FAERS Safety Report 12706855 (Version 1)
Quarter: 2016Q3

REPORT INFORMATION
  Report Type: Spontaneous
  Country: US (occurrence: US)
  Receive Date: 20160901
  Receipt Date: 20160901
  Transmission Date: 20161109
  Serious: No
  Sender: FDA-Public Use
  Company Number: US-SUN PHARMACEUTICAL INDUSTRIES LTD-2015US-104883

PATIENT
  Age: 57 Year
  Sex: Male

DRUGS (1)
  1. OCTREOTIDE. [Suspect]
     Active Substance: OCTREOTIDE
     Indication: DIARRHOEA
     Dosage: UNK
     Route: 065
     Dates: start: 20150919

REACTIONS (2)
  - Product packaging issue [Unknown]
  - Product package associated injury [Unknown]

NARRATIVE: CASE EVENT DATE: 20150919
